FAERS Safety Report 5533122-2 (Version None)
Quarter: 2007Q4

REPORT INFORMATION
  Report Type: 
  Country: None (occurrence: None)
  Receive Date: 20071204
  Receipt Date: 20071127
  Transmission Date: 20080405
  Serious: Yes (Other)
  Sender: FDA-Public Use
  Company Number: US-AVENTIS-200718243US

PATIENT
  Sex: Female

DRUGS (5)
  1. LANTUS [Suspect]
     Dosage: DOSE: UNK
     Route: 051
     Dates: end: 20070101
  2. HUMALOG [Concomitant]
     Route: 051
  3. HUMALOG [Concomitant]
     Route: 051
  4. INSULIN DETEMIR [Concomitant]
     Dosage: DOSE: UNK
  5. DRUG USED IN DIABETES [Concomitant]
     Dosage: DOSE: UNK

REACTIONS (3)
  - BLOOD GLUCOSE INCREASED [None]
  - NAUSEA [None]
  - WEIGHT INCREASED [None]
